FAERS Safety Report 5612369-0 (Version None)
Quarter: 2008Q1

REPORT INFORMATION
  Report Type: 
  Country: None (occurrence: None)
  Receive Date: 20080201
  Receipt Date: 20080201
  Transmission Date: 20080703
  Serious: Yes (Other)
  Sender: FDA-Public Use
  Company Number: None

PATIENT
  Sex: Female
  Weight: 63.5036 kg

DRUGS (3)
  1. PAXIL [Suspect]
     Dosage: 20 MG QD + BID PO
     Route: 048
     Dates: start: 20050101
  2. PAXIL CR [Suspect]
     Dosage: PO
     Route: 048
     Dates: start: 20050101
  3. PRILOSEC [Concomitant]

REACTIONS (2)
  - DRUG EFFECT DECREASED [None]
  - THERAPEUTIC RESPONSE UNEXPECTED WITH DRUG SUBSTITUTION [None]
